FAERS Safety Report 6837887-9 (Version None)
Quarter: 2010Q3

REPORT INFORMATION
  Report Type: 
  Country: None (occurrence: None)
  Receive Date: 20100713
  Receipt Date: 20070525
  Transmission Date: 20110219
  Serious: No
  Sender: FDA-Public Use
  Company Number: US-PFIZER INC-2007042120

PATIENT
  Sex: Female
  Weight: 65.909 kg

DRUGS (8)
  1. CHANTIX [Suspect]
     Indication: SMOKING CESSATION THERAPY
     Dates: start: 20070515
  2. POTASSIUM [Concomitant]
  3. ACETYLSALICYLIC ACID [Concomitant]
  4. DILTIAZEM [Concomitant]
  5. FAMOTIDINE [Concomitant]
  6. ESTRADIOL [Concomitant]
  7. ZETIA [Concomitant]
  8. FUROSEMIDE [Concomitant]

REACTIONS (1)
  - SOMNOLENCE [None]
